FAERS Safety Report 8503650-6 (Version None)
Quarter: 2012Q3

REPORT INFORMATION
  Report Type: 
  Country: None (occurrence: None)
  Receive Date: 20120702
  Receipt Date: 20120613
  Transmission Date: 20120928
  Serious: Yes (Other)
  Sender: FDA-Public Use
  Company Number: US-20120033

PATIENT
  Age: 55 Year
  Sex: Male

DRUGS (1)
  1. OXILAN (IOXILAN) (IOXILAN) [Suspect]
     Indication: THROMBECTOMY
     Dosage: 50 TO 60 CC TWICE, INTERVAL TIME NOS

REACTIONS (4)
  - PRURITUS [None]
  - CHILLS [None]
  - ERYTHEMA [None]
  - DYSPNOEA [None]
